FAERS Safety Report 22633787 (Version 1)
Quarter: 2023Q2

REPORT INFORMATION
  Report Type: Spontaneous
  Country: US (occurrence: US)
  Receive Date: 20230623
  Receipt Date: 20230623
  Transmission Date: 20230722
  Serious: Yes (Hospitalization)
  Sender: FDA-Public Use
  Company Number: US-GLAXOSMITHKLINE-US2023AMR085814

PATIENT

DRUGS (5)
  1. VENTOLIN [Interacting]
     Active Substance: ALBUTEROL SULFATE
     Indication: Product used for unknown indication
     Dosage: UNK
  2. PAXLOVID [Interacting]
     Active Substance: NIRMATRELVIR\RITONAVIR
     Indication: COVID-19
     Dosage: UNK
  3. TESSALON [Interacting]
     Active Substance: BENZONATATE
     Indication: Product used for unknown indication
     Dosage: UNK
  4. PREDNISONE [Interacting]
     Active Substance: PREDNISONE
     Indication: Product used for unknown indication
     Dosage: UNK
  5. TYLENOL [Interacting]
     Active Substance: ACETAMINOPHEN
     Indication: Pyrexia
     Dosage: UNK

REACTIONS (7)
  - Hospitalisation [Unknown]
  - Pyrexia [Not Recovered/Not Resolved]
  - SARS-CoV-2 test positive [Unknown]
  - Sinusitis [Unknown]
  - Hair disorder [Unknown]
  - Feeling abnormal [Unknown]
  - Drug interaction [Unknown]
